FAERS Safety Report 22331571 (Version 1)
Quarter: 2023Q2

REPORT INFORMATION
  Report Type: Spontaneous
  Country: US (occurrence: None)
  Receive Date: 20230516
  Receipt Date: 20230516
  Transmission Date: 20230722
  Serious: No
  Sender: FDA-Public Use
  Company Number: None

PATIENT
  Age: 40 Year
  Sex: Female
  Weight: 77.85 kg

DRUGS (16)
  1. PAXLOVID [Suspect]
     Active Substance: NIRMATRELVIR\RITONAVIR
     Indication: COVID-19
     Dosage: OTHER QUANTITY : 3 CAPSULE(S);?FREQUENCY : TWICE A DAY;?
     Route: 048
     Dates: start: 20230508, end: 20230510
  2. ADDERALL XR [Concomitant]
     Active Substance: AMPHETAMINE ASPARTATE\AMPHETAMINE SULFATE\DEXTROAMPHETAMINE SACCHARATE\DEXTROAMPHETAMINE SULFATE
  3. CLONAZEPAM [Concomitant]
     Active Substance: CLONAZEPAM
  4. DOXEPIN [Concomitant]
     Active Substance: DOXEPIN
  5. FLONASE [Concomitant]
     Active Substance: FLUTICASONE PROPIONATE
  6. CLARITIN [Concomitant]
     Active Substance: LORATADINE
  7. NEXIUM 24-HOUR [Concomitant]
  8. ALBUTEROL SULFATE [Concomitant]
     Active Substance: ALBUTEROL SULFATE
  9. FLOVENT [Concomitant]
     Active Substance: FLUTICASONE PROPIONATE
  10. MUCINEX [Concomitant]
     Active Substance: GUAIFENESIN
  11. CLONIDINE [Concomitant]
     Active Substance: CLONIDINE
  12. DIETARY SUPPLEMENT\HERBALS\MILK THISTLE [Concomitant]
     Active Substance: MILK THISTLE
  13. SCHISANRDA BERRY TEA [Concomitant]
  14. MUCINEX [Concomitant]
     Active Substance: GUAIFENESIN
  15. ADVIL [Concomitant]
  16. NEXIUM [Concomitant]
     Active Substance: ESOMEPRAZOLE MAGNESIUM

REACTIONS (9)
  - Palpitations [None]
  - Headache [None]
  - Bronchospasm [None]
  - Dizziness [None]
  - Electrocardiogram ST segment elevation [None]
  - Blood pressure increased [None]
  - White blood cell count increased [None]
  - Neutrophil count increased [None]
  - Palpitations [None]

NARRATIVE: CASE EVENT DATE: 20230509
